FAERS Safety Report 8702819 (Version 2)
Quarter: 2013Q4

REPORT INFORMATION
  Report Type: Spontaneous
  Country: US (occurrence: US)
  Receive Date: 20120803
  Receipt Date: 20131101
  Transmission Date: 20140711
  Serious: No
  Sender: FDA-Public Use
  Company Number: US-009507513-83050280

PATIENT
  Age: 64 Year
  Sex: Female
  Weight: 119.75 kg

DRUGS (2)
  1. SINEMET [Suspect]
     Indication: PARKINSON^S DISEASE
     Dosage: 4 MG, UNK
     Route: 048
     Dates: start: 19820107
  2. LASIX (FUROSEMIDE SODIUM) [Concomitant]
     Indication: HYPERTENSION
     Route: 048

REACTIONS (1)
  - Alopecia [Unknown]
